FAERS Safety Report 4855702-X (Version None)
Quarter: 2005Q4

REPORT INFORMATION
  Report Type: 
  Country: None (occurrence: None)
  Receive Date: 20051216
  Receipt Date: 20051207
  Transmission Date: 20060501
  Serious: Yes (Other)
  Sender: FDA-Public Use
  Company Number: US-ROCHE-428121

PATIENT
  Age: 53 Year
  Sex: Male

DRUGS (7)
  1. PEGASYS [Suspect]
     Indication: DRUG USE FOR UNKNOWN INDICATION
     Route: 065
     Dates: start: 20050915
  2. COPEGUS [Suspect]
     Indication: DRUG USE FOR UNKNOWN INDICATION
     Route: 048
     Dates: start: 20051201
  3. COPEGUS [Suspect]
     Route: 048
     Dates: start: 20050915
  4. METFORMIN [Concomitant]
     Route: 048
  5. AVANDIA [Concomitant]
     Route: 048
  6. DIOVAN [Concomitant]
     Route: 048
  7. MULTI-VITAMIN [Concomitant]

REACTIONS (7)
  - ABASIA [None]
  - ASTHENIA [None]
  - DIZZINESS [None]
  - DYSSTASIA [None]
  - FALL [None]
  - HAEMOGLOBIN DECREASED [None]
  - MUSCULOSKELETAL DISCOMFORT [None]
